FAERS Safety Report 16251455 (Version 1)
Quarter: 2019Q2

REPORT INFORMATION
  Report Type: Spontaneous
  Country: FR (occurrence: FR)
  Receive Date: 20190429
  Receipt Date: 20190429
  Transmission Date: 20190711
  Serious: Yes (Other)
  Sender: FDA-Public Use
  Company Number: FR-MYLANLABS-2019M1039164

PATIENT
  Age: 76 Year
  Sex: Female

DRUGS (4)
  1. TOCO [Concomitant]
     Active Substance: UNSPECIFIED INGREDIENT
     Dosage: UNK UNK, UNK
     Route: 065
  2. XELODA [Concomitant]
     Active Substance: CAPECITABINE
     Dosage: UNK UNK, UNK
     Route: 065
  3. OMEPRAZOLE. [Suspect]
     Active Substance: OMEPRAZOLE
     Indication: PRODUCT USED FOR UNKNOWN INDICATION
     Dosage: 2 DF, QD
     Route: 065
     Dates: start: 20181029
  4. ADANCOR [Concomitant]
     Active Substance: NICORANDIL
     Dosage: UNK UNK, UNK
     Route: 065

REACTIONS (7)
  - Abdominal pain upper [Unknown]
  - Pain in extremity [Unknown]
  - Chills [Unknown]
  - Diarrhoea haemorrhagic [Unknown]
  - Eye swelling [Unknown]
  - Heart rate increased [Unknown]
  - Lip dry [Unknown]
